FAERS Safety Report 7296947-1 (Version None)
Quarter: 2011Q1

REPORT INFORMATION
  Report Type: 
  Country: None (occurrence: None)
  Receive Date: 20110216
  Receipt Date: 20110210
  Transmission Date: 20110831
  Serious: Yes (Other)
  Sender: FDA-Public Use
  Company Number: US-SANOFI-AVENTIS-2010SA058465

PATIENT
  Sex: Male
  Weight: 108 kg

DRUGS (16)
  1. PRILOSEC [Concomitant]
  2. METOPROLOL [Concomitant]
  3. GABAPENTIN [Concomitant]
     Dosage: 3 OR 4 TIMES DAILY
  4. LISINOPRIL [Concomitant]
  5. TYLENOL (CAPLET) [Concomitant]
     Indication: ARTHRITIS
     Dosage: 2 TABLETS AS NECESSARY
  6. HYDROXYZINE [Concomitant]
     Dosage: 3 TIMES DAILY AS NEEDED
  7. LANTUS [Suspect]
     Dosage: DOSE:32 UNIT(S)
     Route: 058
     Dates: start: 20000101
  8. FISH OIL [Concomitant]
     Dosage: 2 TO 3 TIMES DAILY
  9. PRIMIDONE [Concomitant]
  10. SIMVASTATIN [Concomitant]
  11. HUMALOG [Concomitant]
     Dosage: VARIOUS AMOUNTS 4 TO 6 TIMES DAILY DEPENDING ON BLOOD SUGAR LEVELS
  12. FLUTICASONE PROPIONATE [Concomitant]
     Dosage: TWICE IN EACH NOSTRIL DAILY
     Route: 045
  13. FUROSEMIDE [Concomitant]
  14. BETAMETHASONE DIPROPIONATE/CLOTRIMAZOLE [Concomitant]
  15. ASPIRIN [Concomitant]
  16. CETIRIZINE [Concomitant]

REACTIONS (4)
  - BLOOD CREATININE INCREASED [None]
  - PRODUCT QUALITY ISSUE [None]
  - RENAL IMPAIRMENT [None]
  - HYPERGLYCAEMIA [None]
